FAERS Safety Report 5905010-0 (Version None)
Quarter: 2008Q4

REPORT INFORMATION
  Report Type: 
  Country: None (occurrence: None)
  Receive Date: 20081001
  Receipt Date: 20080924
  Transmission Date: 20090506
  Serious: Yes (Hospitalization)
  Sender: FDA-Public Use
  Company Number: PL-ROCHE-587679

PATIENT
  Sex: Female

DRUGS (1)
  1. BONIVA [Suspect]
     Indication: OSTEOPOROSIS POSTMENOPAUSAL
     Dosage: STRENGHT: 3MG/3ML, DOSAGE: 1X3MONTHS.
     Route: 042
     Dates: start: 20080811

REACTIONS (4)
  - BLOOD PRESSURE INCREASED [None]
  - NAUSEA [None]
  - RENAL FAILURE [None]
  - VOMITING [None]
